FAERS Safety Report 8873819 (Version 1)
Quarter: 2012Q4

REPORT INFORMATION
  Report Type: 
  Country: US (occurrence: US)
  Receive Date: 20121023
  Receipt Date: 20121023
  Transmission Date: 20130627
  Serious: Yes (Life-Threatening, Hospitalization)
  Sender: FDA-Public Use
  Company Number: US-ASTELLAS-2012US002981

PATIENT
  Age: 83 Year
  Sex: Female

DRUGS (2)
  1. LEXISCAN [Suspect]
     Indication: EXERCISE ELECTROCARDIOGRAM
     Dosage: UNK
     Route: 042
     Dates: start: 20120320, end: 20120320
  2. ATENOLOL [Concomitant]
     Indication: PRODUCT USED FOR UNKNOWN INDICATION
     Dosage: UNK
     Route: 065

REACTIONS (7)
  - Off label use [Unknown]
  - Atrioventricular block complete [Recovered/Resolved]
  - Loss of consciousness [Recovered/Resolved]
  - Nodal rhythm [Unknown]
  - Dizziness [Recovering/Resolving]
  - Hypertension [Unknown]
  - Chest pain [Unknown]
